FAERS Safety Report 5632410-9 (Version None)
Quarter: 2008Q1

REPORT INFORMATION
  Report Type: 
  Country: None (occurrence: None)
  Receive Date: 20080220
  Receipt Date: 20080215
  Transmission Date: 20080703
  Serious: No
  Sender: FDA-Public Use
  Company Number: US-BOEHRINGER INGELHEIM GMBH, GERMANY-2007-BP-25168BP

PATIENT
  Sex: Female
  Weight: 98 kg

DRUGS (5)
  1. MIRAPEX [Suspect]
     Indication: RESTLESS LEGS SYNDROME
     Route: 048
     Dates: start: 20070528, end: 20070810
  2. CRESTOR [Concomitant]
     Indication: BLOOD CHOLESTEROL INCREASED
  3. TOMOPOX [Concomitant]
     Indication: MIGRAINE
  4. MECLIZINE [Concomitant]
     Indication: MIGRAINE
  5. CLINOSTOPINE [Concomitant]
     Indication: PANIC ATTACK

REACTIONS (12)
  - AMNESIA [None]
  - ANGER [None]
  - ANOREXIA [None]
  - DIPLOPIA [None]
  - EPICONDYLITIS [None]
  - GAIT DISTURBANCE [None]
  - HALLUCINATION [None]
  - INSOMNIA [None]
  - ROAD TRAFFIC ACCIDENT [None]
  - VISUAL DISTURBANCE [None]
  - WEIGHT DECREASED [None]
  - WEIGHT FLUCTUATION [None]
